FAERS Safety Report 10982306 (Version 4)
Quarter: 2015Q2

REPORT INFORMATION
  Report Type: Spontaneous
  Country: US (occurrence: US)
  Receive Date: 20150403
  Receipt Date: 20150525
  Transmission Date: 20150821
  Serious: Yes (Hospitalization, Other)
  Sender: FDA-Public Use
  Company Number: US-AMGEN-USASP2015031101

PATIENT
  Age: 68 Year
  Sex: Female

DRUGS (5)
  1. HYDROXYCHLOROQUINE                 /00072603/ [Concomitant]
     Indication: RHEUMATOID ARTHRITIS
     Dosage: 200 MG, PER DAY
     Route: 048
  2. HYDREA [Concomitant]
     Active Substance: HYDROXYUREA
     Indication: THROMBOCYTOSIS
     Dosage: UNK
     Route: 048
  3. PREDNISONE. [Concomitant]
     Active Substance: PREDNISONE
     Indication: RHEUMATOID ARTHRITIS
     Dosage: 2 MG, PER DAY
     Route: 048
  4. LIBRAX                             /00847101/ [Concomitant]
     Dosage: UNK
  5. ENBREL [Suspect]
     Active Substance: ETANERCEPT
     Indication: RHEUMATOID ARTHRITIS
     Dosage: 50 MG, QWK
     Route: 058
     Dates: start: 19980101, end: 201411

REACTIONS (6)
  - Pneumonia [Not Recovered/Not Resolved]
  - Mycobacterium abscessus infection [Recovering/Resolving]
  - Musculoskeletal stiffness [Not Recovered/Not Resolved]
  - Thrombocytosis [Unknown]
  - Bronchitis [Recovering/Resolving]
  - Pain [Not Recovered/Not Resolved]

NARRATIVE: CASE EVENT DATE: 2011
